FAERS Safety Report 8070637-X (Version None)
Quarter: 2012Q1

REPORT INFORMATION
  Report Type: 
  Country: None (occurrence: None)
  Receive Date: 20120125
  Receipt Date: 20120119
  Transmission Date: 20120608
  Serious: Yes (Hospitalization, Other)
  Sender: FDA-Public Use
  Company Number: PHHY2012NL005322

PATIENT
  Sex: Male

DRUGS (3)
  1. ZOMETA [Suspect]
     Dosage: 4 MG/100 ML , 1X PER 28 DAYS
     Dates: start: 20120119
  2. ZOMETA [Suspect]
     Indication: PROSTATE CANCER METASTATIC
     Dosage: 4 MG/100 ML , 1X PER 28 DAYS
  3. ZOMETA [Suspect]
     Dosage: 4 MG/100 ML , 1X PER 28 DAYS
     Dates: start: 20091105

REACTIONS (4)
  - GENERAL PHYSICAL HEALTH DETERIORATION [None]
  - OEDEMA [None]
  - MALAISE [None]
  - HAEMOGLOBIN DECREASED [None]
